FAERS Safety Report 19508774 (Version 1)
Quarter: 2021Q3

REPORT INFORMATION
  Report Type: Report from Study
  Country: RO (occurrence: RO)
  Receive Date: 20210708
  Receipt Date: 20210708
  Transmission Date: 20211014
  Serious: Yes (Other)
  Sender: FDA-Public Use
  Company Number: RO-JNJFOC-20210702428

PATIENT

DRUGS (3)
  1. CANAGLIFLOZIN [Suspect]
     Active Substance: CANAGLIFLOZIN
     Indication: PRODUCT USED FOR UNKNOWN INDICATION
     Route: 048
  2. CANAGLIFLOZIN [Suspect]
     Active Substance: CANAGLIFLOZIN
     Route: 048
  3. CANAGLIFLOZIN [Suspect]
     Active Substance: CANAGLIFLOZIN
     Route: 048

REACTIONS (8)
  - Pancreatitis acute [Unknown]
  - Pancreatic enlargement [Unknown]
  - Pancreatitis necrotising [Unknown]
  - Pancreatitis [Unknown]
  - Pancreatitis relapsing [Unknown]
  - Pancreatic failure [Unknown]
  - Pancreatitis haemorrhagic [Unknown]
  - Pancreatic pseudocyst [Unknown]
